FAERS Safety Report 5513733-0 (Version None)
Quarter: 2007Q4

REPORT INFORMATION
  Report Type: 
  Country: None (occurrence: None)
  Receive Date: 20071113
  Receipt Date: 20071106
  Transmission Date: 20080405
  Serious: Yes (Death, Hospitalization)
  Sender: FDA-Public Use
  Company Number: PHHO2007US06145

PATIENT
  Age: 68 Year
  Sex: Male
  Weight: 72.562 kg

DRUGS (10)
  1. GLEEVEC [Suspect]
     Indication: NON-SMALL CELL LUNG CANCER
     Dosage: 600MG DAILY
     Route: 048
     Dates: start: 20070307
  2. TAXOTERE [Suspect]
     Indication: NON-SMALL CELL LUNG CANCER
     Dosage: 57MG
     Route: 042
     Dates: start: 20070307, end: 20070322
  3. ALBUTEROL [Concomitant]
  4. VERAPAMIL [Concomitant]
  5. LISINOPRIL [Concomitant]
  6. ALTOPREV [Concomitant]
  7. PROMETHAZINE W/ CODEINE [Concomitant]
  8. COMPAZINE [Concomitant]
  9. DECADRON [Concomitant]
  10. AUGMENTIN [Concomitant]

REACTIONS (28)
  - AGITATION [None]
  - ANAEMIA [None]
  - ANXIETY [None]
  - APNOEA [None]
  - ATELECTASIS [None]
  - BACTERIAL INFECTION [None]
  - BLOOD BICARBONATE INCREASED [None]
  - BLOOD UREA INCREASED [None]
  - CHILLS [None]
  - CONFUSIONAL STATE [None]
  - DYSPNOEA [None]
  - FEAR OF DEATH [None]
  - HAEMOPTYSIS [None]
  - HYPERTENSION [None]
  - HYPOKALAEMIA [None]
  - HYPOXIA [None]
  - MALIGNANT NEOPLASM PROGRESSION [None]
  - METABOLIC ALKALOSIS [None]
  - OXYGEN SATURATION DECREASED [None]
  - PLEURAL EFFUSION [None]
  - PNEUMONIA [None]
  - POLYURIA [None]
  - PYREXIA [None]
  - RESPIRATORY ACIDOSIS [None]
  - RESPIRATORY DISTRESS [None]
  - RESPIRATORY FAILURE [None]
  - UNRESPONSIVE TO STIMULI [None]
  - WHEEZING [None]
